FAERS Safety Report 11826697 (Version 2)
Quarter: 2015Q4

REPORT INFORMATION
  Report Type: Report from Study
  Country: BR (occurrence: BR)
  Receive Date: 20151211
  Receipt Date: 20151217
  Transmission Date: 20160305
  Serious: Yes (Hospitalization, Other)
  Sender: FDA-Public Use
  Company Number: PHHY2015BR162197

PATIENT
  Age: 10 Year
  Sex: Female
  Weight: 28.7 kg

DRUGS (3)
  1. HYDREA [Concomitant]
     Active Substance: HYDROXYUREA
     Indication: SICKLE CELL ANAEMIA
     Dosage: 2 DF, QD
     Route: 048
  2. FOLIC ACID. [Concomitant]
     Active Substance: FOLIC ACID
     Indication: SICKLE CELL ANAEMIA
     Dosage: 1 DF, QW3
     Route: 048
  3. EXJADE [Suspect]
     Active Substance: DEFERASIROX
     Indication: SICKLE CELL ANAEMIA
     Dosage: 1 DF (15 MG/KG), QD
     Route: 048

REACTIONS (7)
  - Pain [Recovered/Resolved]
  - Cerebrovascular accident [Recovered/Resolved]
  - Gait disturbance [Unknown]
  - Cholelithiasis [Not Recovered/Not Resolved]
  - Rhinitis [Recovering/Resolving]
  - Nausea [Recovering/Resolving]
  - Dysstasia [Unknown]

NARRATIVE: CASE EVENT DATE: 201505
